FAERS Safety Report 14498273 (Version 1)
Quarter: 2018Q1

REPORT INFORMATION
  Report Type: Report from Study
  Country: IR (occurrence: IR)
  Receive Date: 20180207
  Receipt Date: 20180207
  Transmission Date: 20180509
  Serious: Yes (Hospitalization)
  Sender: FDA-Public Use
  Company Number: IR-BAYER-2017-239036

PATIENT
  Age: 27 Year
  Sex: Female

DRUGS (2)
  1. BETAFERON [Suspect]
     Active Substance: INTERFERON BETA-1B
     Indication: MULTIPLE SCLEROSIS
     Dosage: 250 ?G, UNK
     Route: 058
     Dates: start: 20060812, end: 20180120
  2. FLUOXETIN [Concomitant]
     Active Substance: FLUOXETINE HYDROCHLORIDE
     Indication: DEPRESSION
     Dosage: 20 MG, BID
     Route: 048
     Dates: start: 20171012

REACTIONS (4)
  - Depression [None]
  - Panic attack [Not Recovered/Not Resolved]
  - Panic attack [Recovering/Resolving]
  - Drug ineffective [None]

NARRATIVE: CASE EVENT DATE: 20171128
